FAERS Safety Report 4716761-8 (Version None)
Quarter: 2005Q3

REPORT INFORMATION
  Report Type: 
  Country: None (occurrence: None)
  Receive Date: 20050719
  Receipt Date: 20050711
  Transmission Date: 20060218
  Serious: Yes (Death)
  Sender: FDA-Public Use
  Company Number: US-KINGPHARMUSA00001-K200500930

PATIENT
  Age: 68 Year
  Sex: Female

DRUGS (5)
  1. ALTACE [Suspect]
     Indication: CARDIOMYOPATHY
     Dosage: 2.5 MG, QD
     Route: 048
     Dates: end: 20050604
  2. SEROQUEL [Suspect]
     Indication: PERSONALITY DISORDER
     Dosage: 400 MG, QD
     Route: 048
     Dates: start: 20050214, end: 20050604
  3. MIRTAZAPINE [Suspect]
     Indication: DEPRESSION
     Dosage: 45 MG, QD
     Route: 048
     Dates: end: 20050604
  4. STILNOCT [Suspect]
     Indication: SLEEP DISORDER
     Dosage: 20 MG, QD
     Route: 048
     Dates: end: 20050604
  5. NOZINAN /NET/ [Suspect]
     Indication: ANXIETY
     Dosage: 25 MG, QD
     Route: 048
     Dates: end: 20050604

REACTIONS (2)
  - COMPLETED SUICIDE [None]
  - MULTIPLE DRUG OVERDOSE [None]
